FAERS Safety Report 5927747-X (Version None)
Quarter: 2008Q4

REPORT INFORMATION
  Report Type: 
  Country: None (occurrence: None)
  Receive Date: 20081020
  Receipt Date: 20081010
  Transmission Date: 20090506
  Serious: Yes (Other)
  Sender: FDA-Public Use
  Company Number: 2008BI020789

PATIENT
  Age: 36 Year
  Sex: Female

DRUGS (5)
  1. AVONEX [Suspect]
     Dosage: SEE IMAGE
     Route: 030
     Dates: end: 20071001
  2. AVONEX [Suspect]
     Dosage: SEE IMAGE
     Route: 030
     Dates: start: 20080620, end: 20080627
  3. AVONEX [Suspect]
     Dosage: SEE IMAGE
     Route: 030
     Dates: start: 20080627, end: 20080704
  4. AVONEX [Suspect]
     Dosage: SEE IMAGE
     Route: 030
     Dates: start: 20040101
  5. AVONEX [Suspect]
     Dosage: SEE IMAGE
     Route: 030
     Dates: start: 20080704

REACTIONS (4)
  - CAESAREAN SECTION [None]
  - DRUG EXPOSURE DURING PREGNANCY [None]
  - LABOUR COMPLICATION [None]
  - PREGNANCY [None]
